FAERS Safety Report 8048557-6 (Version None)
Quarter: 2012Q1

REPORT INFORMATION
  Report Type: 
  Country: None (occurrence: None)
  Receive Date: 20120117
  Receipt Date: 20120112
  Transmission Date: 20120608
  Serious: Yes (Other)
  Sender: FDA-Public Use
  Company Number: US-BAYER-2012-004131

PATIENT
  Age: 81 Year
  Sex: Male

DRUGS (2)
  1. NEXAVAR [Suspect]
     Dosage: 400 MG, QD
     Dates: start: 20120109
  2. NEXAVAR [Suspect]
     Indication: HEPATIC NEOPLASM MALIGNANT
     Dosage: 400 MG,
     Dates: start: 20111223, end: 20111224

REACTIONS (6)
  - FEELING ABNORMAL [None]
  - DIARRHOEA [None]
  - PARAESTHESIA [None]
  - DECREASED APPETITE [None]
  - HOT FLUSH [None]
  - FATIGUE [None]
